FAERS Safety Report 11111837 (Version 4)
Quarter: 2015Q4

REPORT INFORMATION
  Report Type: Report from Study
  Country: JP (occurrence: JP)
  Receive Date: 20150514
  Receipt Date: 20151008
  Transmission Date: 20160304
  Serious: Yes (Death, Other)
  Sender: FDA-Public Use
  Company Number: JP-PFIZER INC-2013370757

PATIENT
  Age: 72 Year
  Sex: Female
  Weight: 43 kg

DRUGS (8)
  1. PROMAC /JPN/ [Concomitant]
     Dosage: 75 MG, 2X/DAY
     Route: 048
  2. LENDORMIN [Concomitant]
     Active Substance: BROTIZOLAM
     Dosage: 0.25 MG, 1X/DAY
     Route: 048
     Dates: end: 20130725
  3. XALKORI [Suspect]
     Active Substance: CRIZOTINIB
     Indication: NON-SMALL CELL LUNG CANCER
     Dosage: 250 MG, 2X/DAY
     Route: 048
     Dates: start: 20130508, end: 20130514
  4. PURSENNIDE [Concomitant]
     Active Substance: SENNOSIDES A AND B
     Dosage: 12 MG, 1X/DAY
     Route: 048
     Dates: start: 20130510, end: 20130510
  5. XALKORI [Suspect]
     Active Substance: CRIZOTINIB
     Dosage: 250 MG, 2X/DAY
     Route: 048
     Dates: start: 20130525
  6. BAYASPIRIN [Concomitant]
     Active Substance: ASPIRIN
     Dosage: 100 MG, 1X/DAY
     Route: 048
  7. CALBLOCK [Concomitant]
     Active Substance: AZELNIDIPINE
     Dosage: 16 MG, 1X/DAY
     Route: 048
  8. TELEMINSOFT [Concomitant]
     Dosage: 10 MG, AS NEEDED
     Route: 054
     Dates: start: 20130510, end: 20130510

REACTIONS (4)
  - Non-small cell lung cancer [Fatal]
  - Presyncope [Recovered/Resolved]
  - Hyponatraemia [Recovering/Resolving]
  - Disease progression [Fatal]

NARRATIVE: CASE EVENT DATE: 20130511
